FAERS Safety Report 5632129-4 (Version None)
Quarter: 2008Q1

REPORT INFORMATION
  Report Type: 
  Country: None (occurrence: None)
  Receive Date: 20080220
  Receipt Date: 20080218
  Transmission Date: 20080703
  Serious: Yes (Other)
  Sender: FDA-Public Use
  Company Number: CA-MERCK-0802CAN00081

PATIENT
  Age: 54 Year
  Sex: Female
  Weight: 41 kg

DRUGS (14)
  1. FOSAMAX [Suspect]
     Route: 048
  2. PREDNISONE [Concomitant]
     Route: 065
  3. ESOMEPRAZOLE MAGNESIUM [Concomitant]
     Route: 065
  4. ATORVASTATIN CALCIUM [Concomitant]
     Route: 065
  5. CITALOPRAM HYDROBROMIDE [Concomitant]
     Route: 065
  6. ALBUTEROL [Concomitant]
     Route: 065
  7. FLUTICASONE PROPIONATE AND SALMETEROL XINAFOATE [Concomitant]
     Route: 065
  8. GABAPENTIN [Concomitant]
     Route: 065
  9. METOPROLOL [Concomitant]
     Route: 065
  10. AMLODIPINE BESYLATE [Concomitant]
     Route: 065
  11. CALCIUM (UNSPECIFIED) [Concomitant]
     Route: 065
  12. TIOTROPIUM BROMIDE [Concomitant]
     Route: 065
  13. ASPIRIN [Concomitant]
     Route: 065
  14. CAPTOPRIL [Concomitant]
     Route: 065

REACTIONS (1)
  - OSTEONECROSIS [None]
